FAERS Safety Report 6258325-3 (Version None)
Quarter: 2009Q3

REPORT INFORMATION
  Report Type: 
  Country: None (occurrence: None)
  Receive Date: 20090707
  Receipt Date: 20090625
  Transmission Date: 20100115
  Serious: Yes (Hospitalization)
  Sender: FDA-Public Use
  Company Number: PHHY2009IN25517

PATIENT
  Age: 70 Year
  Sex: Female

DRUGS (1)
  1. DICLOFENAC SODIUM [Suspect]
     Indication: HEADACHE
     Dosage: 50 MG, BID

REACTIONS (10)
  - ABDOMINAL PAIN [None]
  - ABDOMINAL RIGIDITY [None]
  - DUODENAL PERFORATION [None]
  - EXPLORATIVE LAPAROTOMY [None]
  - HYPOTENSION [None]
  - PERITONEAL FLUID ANALYSIS ABNORMAL [None]
  - PERITONITIS [None]
  - POST PROCEDURAL DRAINAGE [None]
  - PYREXIA [None]
  - TACHYCARDIA [None]
